FAERS Safety Report 7629184-9 (Version None)
Quarter: 2011Q3

REPORT INFORMATION
  Report Type: 
  Country: None (occurrence: None)
  Receive Date: 20110722
  Receipt Date: 20110714
  Transmission Date: 20111222
  Serious: Yes (Hospitalization)
  Sender: FDA-Public Use
  Company Number: PHHO2007US20562

PATIENT
  Sex: Male
  Weight: 109 kg

DRUGS (4)
  1. ZORTRESS [Suspect]
     Indication: HEART TRANSPLANT
     Route: 048
     Dates: start: 20060908
  2. PREDNISONE [Concomitant]
     Indication: GOUT
     Dosage: 30 MG, QD
     Route: 048
     Dates: start: 20071213
  3. LASIX [Concomitant]
  4. LISINOPRIL [Concomitant]

REACTIONS (9)
  - DIARRHOEA [None]
  - POLYURIA [None]
  - HYPERTENSION [None]
  - ARTHRALGIA [None]
  - PAIN IN EXTREMITY [None]
  - WEIGHT DECREASED [None]
  - DEHYDRATION [None]
  - DIZZINESS [None]
  - RENAL FAILURE CHRONIC [None]
